FAERS Safety Report 6668243-4 (Version None)
Quarter: 2010Q2

REPORT INFORMATION
  Report Type: 
  Country: None (occurrence: None)
  Receive Date: 20100406
  Receipt Date: 20100325
  Transmission Date: 20101027
  Serious: Yes (Hospitalization)
  Sender: FDA-Public Use
  Company Number: NL-ELI_LILLY_AND_COMPANY-NL201003007040

PATIENT
  Sex: Male
  Weight: 98 kg

DRUGS (11)
  1. GEMCITABINE HCL [Suspect]
     Dosage: EVERY 3 WEEKS
     Route: 042
     Dates: start: 20100121
  2. CISPLATIN [Suspect]
     Dosage: EVERY 3 WEEKS
     Route: 042
     Dates: start: 20100121
  3. HEPARIN [Suspect]
     Dosage: UNK, DAILY (1/D)
     Route: 058
     Dates: start: 20100121
  4. ASCAL [Concomitant]
     Dosage: 80 MG, DAILY (1/D)
     Route: 048
  5. ALFUZOSINE HCL [Concomitant]
     Dosage: 2.5 MG, DAILY (1/D)
     Route: 048
  6. AMITRIPTYLINE HCL [Concomitant]
     Dosage: 25 MG, DAILY (1/D)
     Route: 048
  7. PANTOPRAZOLE [Concomitant]
     Dosage: 40 MG, DAILY (1/D)
     Route: 048
  8. METOPROLOL SUCCINATE [Concomitant]
     Dosage: 50 MG, DAILY (1/D)
     Route: 048
  9. PROMOCARD [Concomitant]
     Dosage: 30 MG, UNK
     Route: 048
  10. SPIRIVA [Concomitant]
  11. SERETIDE [Concomitant]

REACTIONS (1)
  - HYPOXIA [None]
